FAERS Safety Report 9728946 (Version 1)
Quarter: 2013Q4

REPORT INFORMATION
  Report Type: Spontaneous
  Country: US (occurrence: US)
  Receive Date: 20131204
  Receipt Date: 20131204
  Transmission Date: 20140711
  Serious: Yes (Other)
  Sender: FDA-Public Use
  Company Number: US-BAYER-2013-145408

PATIENT
  Age: 34 Year
  Sex: Female
  Weight: 63 kg

DRUGS (2)
  1. ALEVE TABLET [Suspect]
     Indication: TOOTHACHE
     Dosage: 2 DF, PRN
     Route: 048
     Dates: end: 20131125
  2. DEPO-PROVERA [Concomitant]
     Dosage: UNK

REACTIONS (6)
  - Swelling [Recovered/Resolved]
  - Dyspnoea [Recovered/Resolved]
  - Hypertension [Recovered/Resolved]
  - Skin warm [Recovered/Resolved]
  - Urticaria [Recovered/Resolved]
  - Generalised erythema [Recovered/Resolved]
